FAERS Safety Report 7585856-6 (Version None)
Quarter: 2011Q2

REPORT INFORMATION
  Report Type: 
  Country: None (occurrence: None)
  Receive Date: 20110624
  Receipt Date: 20100524
  Transmission Date: 20111010
  Serious: Yes (Hospitalization, Disabling, Other)
  Sender: FDA-Public Use
  Company Number: DSA_45527_2011

PATIENT
  Sex: Male

DRUGS (15)
  1. PROTONIX [Concomitant]
  2. AGGRENOX [Concomitant]
  3. INSULINS AND ANALOGUES  LONG-ACTING [Concomitant]
  4. WELLBUTRIN XL [Suspect]
     Indication: INSOMNIA
     Dosage: (150 MG, (4 MG BID ORAL)
     Route: 048
     Dates: start: 20040610, end: 20080603
  5. WELLBUTRIN XL [Suspect]
     Indication: ANXIETY
     Dosage: (150 MG, (4 MG BID ORAL)
     Route: 048
     Dates: start: 20040610, end: 20080603
  6. WELLBUTRIN XL [Suspect]
     Indication: WEIGHT DECREASED
     Dosage: (150 MG, (4 MG BID ORAL)
     Route: 048
     Dates: start: 20040610, end: 20080603
  7. METFORMIN HYDROCHLORIDE [Concomitant]
  8. LISINOPRIL [Concomitant]
  9. OMEPRAZOLE [Concomitant]
  10. AVANDIA [Suspect]
     Indication: TYPE 2 DIABETES MELLITUS
     Dosage: (4 MG BID ORAL), (8 MG DAILY ORAL), (4 MG DAILY ORAL), (DF ORAL)
     Route: 048
     Dates: start: 20090101, end: 20091101
  11. AVANDIA [Suspect]
     Indication: TYPE 2 DIABETES MELLITUS
     Dosage: (4 MG BID ORAL), (8 MG DAILY ORAL), (4 MG DAILY ORAL), (DF ORAL)
     Route: 048
     Dates: start: 20060101, end: 20090901
  12. AVANDIA [Suspect]
     Indication: TYPE 2 DIABETES MELLITUS
     Dosage: (4 MG BID ORAL), (8 MG DAILY ORAL), (4 MG DAILY ORAL), (DF ORAL)
     Route: 048
     Dates: start: 20080101, end: 20090101
  13. AVANDIA [Suspect]
     Indication: TYPE 2 DIABETES MELLITUS
     Dosage: (4 MG BID ORAL), (8 MG DAILY ORAL), (4 MG DAILY ORAL), (DF ORAL)
     Route: 048
     Dates: end: 20100519
  14. AVANDIA [Suspect]
     Indication: TYPE 2 DIABETES MELLITUS
     Dosage: (4 MG BID ORAL), (8 MG DAILY ORAL), (4 MG DAILY ORAL), (DF ORAL)
     Route: 048
     Dates: start: 20060101, end: 20060101
  15. INSULIN LISPRO [Concomitant]

REACTIONS (26)
  - CEREBROVASCULAR ACCIDENT [None]
  - PALPITATIONS [None]
  - CHOLECYSTITIS INFECTIVE [None]
  - FIBROSIS [None]
  - POST PROCEDURAL BILE LEAK [None]
  - LIVER INJURY [None]
  - DRY MOUTH [None]
  - CHOLECYSTITIS CHRONIC [None]
  - DIZZINESS [None]
  - DECREASED APPETITE [None]
  - POST PROCEDURAL COMPLICATION [None]
  - PANCREATITIS [None]
  - HEPATIC PAIN [None]
  - DEVICE OCCLUSION [None]
  - DIABETES MELLITUS INADEQUATE CONTROL [None]
  - VISION BLURRED [None]
  - MALAISE [None]
  - TRANSIENT ISCHAEMIC ATTACK [None]
  - CONDITION AGGRAVATED [None]
  - EPISTAXIS [None]
  - NEPHROLITHIASIS [None]
  - BILE DUCT STONE [None]
  - NAUSEA [None]
  - CHOLELITHIASIS [None]
  - HEADACHE [None]
  - OBSTRUCTION [None]
